FAERS Safety Report 9397573 (Version 1)
Quarter: 2013Q3

REPORT INFORMATION
  Report Type: Spontaneous
  Country: US (occurrence: None)
  Receive Date: 20130711
  Receipt Date: 20130711
  Transmission Date: 20140515
  Serious: Yes (Other)
  Sender: FDA-Public Use
  Company Number: None

PATIENT
  Age: 82 Year
  Sex: Male
  Weight: 112 kg

DRUGS (1)
  1. FOSAPREPITANT [Suspect]
     Dosage: 150 MG  X 1  IV
     Route: 042
     Dates: start: 20130606

REACTIONS (3)
  - Flushing [None]
  - Back pain [None]
  - Presyncope [None]
